FAERS Safety Report 24423168 (Version 1)
Quarter: 2024Q4

REPORT INFORMATION
  Report Type: Spontaneous
  Country: US (occurrence: US)
  Receive Date: 20241010
  Receipt Date: 20241010
  Transmission Date: 20250114
  Serious: Yes (Hospitalization)
  Sender: ANI
  Company Number: US-ANIPHARMA-2024-US-054379

PATIENT
  Age: 79 Year
  Sex: Female

DRUGS (3)
  1. ARIMIDEX [Suspect]
     Active Substance: ANASTROZOLE
     Indication: Product used for unknown indication
     Dosage: UNK / 1X/DAY
  2. IBRANCE [Suspect]
     Active Substance: PALBOCICLIB
     Dosage: 150MG; 125MG; 100MG, CYCLIC, 1X/DAY, 3 WEEKS ON, 1 WEEK OFF; 75MG, CYCLIC, DAILY 2 WEEKS ON, 1 WEEK
     Route: 048
  3. SYNTHROID [Concomitant]
     Active Substance: LEVOTHYROXINE SODIUM
     Dates: start: 1998

REACTIONS (19)
  - White blood cell count decreased [Not Recovered/Not Resolved]
  - Back pain [Recovered/Resolved]
  - Dyspnoea exertional [Unknown]
  - Asthenia [Unknown]
  - Poor quality sleep [Unknown]
  - Fatigue [Unknown]
  - Malaise [Recovering/Resolving]
  - Sleep disorder [Recovering/Resolving]
  - Mean cell volume increased [Unknown]
  - Mean cell haemoglobin increased [Unknown]
  - Neutrophil count decreased [Unknown]
  - Red blood cell count decreased [Not Recovered/Not Resolved]
  - Lymphocyte count decreased [Unknown]
  - Nervousness [Unknown]
  - Immune system disorder [Not Recovered/Not Resolved]
  - Hypersomnia [Not Recovered/Not Resolved]
  - Hot flush [Not Recovered/Not Resolved]
  - Blood oestrogen decreased [Unknown]
  - Bone loss [Recovered/Resolved]

NARRATIVE: CASE EVENT DATE: 20210901
